FAERS Safety Report 23451930 (Version 1)
Quarter: 2024Q1

REPORT INFORMATION
  Report Type: Spontaneous
  Country: US (occurrence: None)
  Receive Date: 20240127
  Receipt Date: 20240127
  Transmission Date: 20240410
  Serious: Yes (Hospitalization)
  Sender: FDA-Public Use
  Company Number: None

PATIENT
  Age: 74 Year
  Sex: Male
  Weight: 56.3 kg

DRUGS (3)
  1. FLUOROURACIL [Suspect]
     Active Substance: FLUOROURACIL
     Dates: end: 20231228
  2. LEUCOVORIN CALCIUM [Suspect]
     Active Substance: LEUCOVORIN CALCIUM
     Dates: end: 20231228
  3. ELOXATIN [Suspect]
     Active Substance: OXALIPLATIN
     Dates: end: 20231228

REACTIONS (10)
  - Hyponatraemia [None]
  - Inappropriate antidiuretic hormone secretion [None]
  - Diarrhoea [None]
  - Confusional state [None]
  - Oedema peripheral [None]
  - Hypervolaemia [None]
  - Pleural effusion [None]
  - Cardiac failure acute [None]
  - Coronary artery disease [None]
  - Hypovolaemia [None]

NARRATIVE: CASE EVENT DATE: 20240109
